FAERS Safety Report 12640966 (Version 1)
Quarter: 2016Q3

REPORT INFORMATION
  Report Type: Spontaneous
  Country: US (occurrence: US)
  Receive Date: 20160810
  Receipt Date: 20160810
  Transmission Date: 20161109
  Serious: No
  Sender: FDA-Public Use
  Company Number: US-NEOS THERAPEUTICS, LP-2016NEO00003

PATIENT
  Age: 56 Year
  Sex: Female

DRUGS (2)
  1. HYDROCODONE POLISTIREX AND CHLORPHENIRAMINE POLISTIREX [Suspect]
     Active Substance: CHLORPHENIRAMINE MALEATE\HYDROCODONE BITARTRATE
     Dosage: UNK
  2. UNKNOWN STEROID [Suspect]
     Active Substance: UNSPECIFIED INGREDIENT

REACTIONS (1)
  - Abdominal discomfort [Unknown]
